FAERS Safety Report 15869413 (Version 2)
Quarter: 2019Q1

REPORT INFORMATION
  Report Type: Report from Study
  Country: JP (occurrence: JP)
  Receive Date: 20190125
  Receipt Date: 20190208
  Transmission Date: 20190417
  Serious: Yes (Death)
  Sender: FDA-Public Use
  Company Number: JP-PFIZER INC-2019019851

PATIENT
  Age: 58 Year
  Sex: Male
  Weight: 59.1 kg

DRUGS (7)
  1. FAMOTIDINE. [Concomitant]
     Active Substance: FAMOTIDINE
     Indication: GASTRITIS PROPHYLAXIS
     Dosage: 40 MG, TWICE PER DAY
     Route: 048
     Dates: start: 20181126
  2. AVELUMAB [Suspect]
     Active Substance: AVELUMAB
     Indication: RENAL CELL CARCINOMA
     Dosage: 638 MG, CYCLIC (EVERY 2 WEEKS)
     Route: 042
     Dates: start: 20170609
  3. ELIQUIS [Concomitant]
     Active Substance: APIXABAN
     Indication: THROMBOSIS PROPHYLAXIS
     Dosage: 10 MG, TWICE PER DAY
     Route: 048
     Dates: start: 20170607
  4. AMLODIPINE [Concomitant]
     Active Substance: AMLODIPINE BESYLATE
     Indication: HYPERTENSION
     Dosage: 10 MG, TWICE PER DAY
     Route: 048
     Dates: start: 20171113
  5. ALPRAZOLAM. [Concomitant]
     Active Substance: ALPRAZOLAM
     Indication: INSOMNIA
     Dosage: 0.4 MG, AS NEEDED
     Route: 048
     Dates: start: 20170510
  6. LOXOPROFEN SODIUM HYDRATE [Concomitant]
     Active Substance: LOXOPROFEN SODIUM DIHYDRATE
     Indication: TUMOUR PAIN
     Dosage: 60 MG, AS NEEDED
     Route: 048
     Dates: start: 20181029
  7. INLYTA [Suspect]
     Active Substance: AXITINIB
     Indication: RENAL CELL CARCINOMA
     Dosage: 6 MG, TWICE DAILY, CONTINUOUS
     Route: 048
     Dates: start: 20170609, end: 20190107

REACTIONS (1)
  - Sudden death [Fatal]

NARRATIVE: CASE EVENT DATE: 20190112
